FAERS Safety Report 13520264 (Version 2)
Quarter: 2017Q2

REPORT INFORMATION
  Report Type: Report from Study
  Country: GB (occurrence: GB)
  Receive Date: 20170507
  Receipt Date: 20170512
  Transmission Date: 20170830
  Serious: Yes (Other)
  Sender: FDA-Public Use
  Company Number: GB-AMGEN-GBRSL2017066372

PATIENT
  Sex: Female

DRUGS (1)
  1. REPATHA [Suspect]
     Active Substance: EVOLOCUMAB
     Indication: PRODUCT USED FOR UNKNOWN INDICATION
     Dosage: 140 MG, UNK
     Route: 065

REACTIONS (5)
  - Parkinson^s disease [Recovered/Resolved]
  - Bone pain [Recovered/Resolved]
  - Low density lipoprotein decreased [Recovered/Resolved]
  - Back pain [Recovered/Resolved]
  - Insomnia [Recovered/Resolved]
